FAERS Safety Report 8849045 (Version 2)
Quarter: 2013Q1

REPORT INFORMATION
  Report Type: Spontaneous
  Country: US (occurrence: US)
  Receive Date: 20121019
  Receipt Date: 20130219
  Transmission Date: 20140127
  Serious: Yes (Other)
  Sender: FDA-Public Use
  Company Number: PHEH2012US020409

PATIENT
  Sex: Male
  Weight: 71.2 kg

DRUGS (1)
  1. GLEEVEC [Suspect]
     Indication: MALIGNANT MELANOMA
     Dosage: 400 MG, QD
     Route: 048
     Dates: start: 20120815, end: 20121231

REACTIONS (14)
  - Malignant melanoma [Unknown]
  - Malignant neoplasm progression [Unknown]
  - Metastases to lung [Unknown]
  - Anaemia macrocytic [Unknown]
  - Nocturia [Unknown]
  - Abdominal pain [Recovered/Resolved]
  - Eye pruritus [Unknown]
  - Diarrhoea [Unknown]
  - Flatulence [Unknown]
  - Oedema [Unknown]
  - Weight increased [Unknown]
  - Dry eye [Unknown]
  - Epistaxis [Unknown]
  - Hypoaesthesia [Unknown]
